FAERS Safety Report 9148387 (Version 2)
Quarter: 2013Q2

REPORT INFORMATION
  Report Type: Spontaneous
  Country: KR (occurrence: None)
  Receive Date: 20130220
  Receipt Date: 20130508
  Transmission Date: 20140414
  Serious: Yes (Death, Hospitalization, Other)
  Sender: FDA-Public Use
  Company Number: JP-2013-10290

PATIENT
  Age: 73 Year
  Sex: Male

DRUGS (6)
  1. OPC-13013 [Suspect]
     Indication: CORONARY ARTERY DISEASE
     Route: 048
     Dates: start: 20100817, end: 20100911
  2. OPC-13013 [Suspect]
     Indication: CORONARY ARTERIAL STENT INSERTION
     Route: 048
     Dates: start: 20100817, end: 20100911
  3. ASPIRIN (ACETYLSALICYLIC ACID) [Suspect]
     Indication: CORONARY ARTERY DISEASE
     Route: 048
     Dates: start: 20100817, end: 20100911
  4. ASPIRIN (ACETYLSALICYLIC ACID) [Suspect]
     Indication: CORONARY ARTERIAL STENT INSERTION
     Route: 048
     Dates: start: 20100817, end: 20100911
  5. CLOPIDOGREL (CLOPIDOGREL) [Suspect]
     Indication: CORONARY ARTERY DISEASE
     Route: 048
     Dates: start: 20100817, end: 20100911
  6. CLOPIDOGREL (CLOPIDOGREL) [Suspect]
     Indication: CORONARY ARTERIAL STENT INSERTION
     Route: 048
     Dates: start: 20100817, end: 20100911

REACTIONS (3)
  - Pneumonia [None]
  - Cerebral infarction [None]
  - Respiratory failure [None]
